FAERS Safety Report 8305438 (Version 4)
Quarter: 2019Q1

REPORT INFORMATION
  Report Type: Spontaneous
  Country: SE (occurrence: SE)
  Receive Date: 20111221
  Receipt Date: 20190207
  Transmission Date: 20190418
  Serious: Yes (Death, Hospitalization)
  Sender: FDA-Public Use
  Company Number: SE-JNJFOC-20111208660

PATIENT
  Age: 56 Year
  Sex: Male

DRUGS (9)
  1. HUMIRA [Concomitant]
     Active Substance: ADALIMUMAB
     Route: 065
  2. PRONAXEN [Concomitant]
     Active Substance: NAPROXEN
     Route: 065
  3. METOPROLOL. [Suspect]
     Active Substance: METOPROLOL
     Indication: ILL-DEFINED DISORDER
     Route: 065
  4. PRONAXEN [Suspect]
     Active Substance: NAPROXEN
     Indication: ILL-DEFINED DISORDER
     Route: 065
  5. ENBREL [Concomitant]
     Active Substance: ETANERCEPT
     Route: 065
  6. SIMPONI [Suspect]
     Active Substance: GOLIMUMAB
     Indication: ANKYLOSING SPONDYLITIS
     Route: 058
     Dates: start: 20111003
  7. CRESTOR [Suspect]
     Active Substance: ROSUVASTATIN CALCIUM
     Indication: ILL-DEFINED DISORDER
     Route: 065
     Dates: start: 20111003, end: 20111029
  8. SULFASALAZINE. [Concomitant]
     Active Substance: SULFASALAZINE
     Route: 065
  9. REMICADE [Concomitant]
     Active Substance: INFLIXIMAB
     Route: 065
     Dates: start: 2008

REACTIONS (5)
  - Cardiac failure acute [Fatal]
  - Presyncope [Fatal]
  - Cholecystitis [Fatal]
  - Presyncope [Unknown]
  - Sepsis [Unknown]

NARRATIVE: CASE EVENT DATE: 20111003
